FAERS Safety Report 6702780-9 (Version None)
Quarter: 2010Q2

REPORT INFORMATION
  Report Type: 
  Country: None (occurrence: None)
  Receive Date: 20100429
  Receipt Date: 20100419
  Transmission Date: 20101027
  Serious: Yes (Hospitalization, Other)
  Sender: FDA-Public Use
  Company Number: US-ELI_LILLY_AND_COMPANY-US201002006288

PATIENT
  Sex: Female

DRUGS (17)
  1. FORTEO [Suspect]
     Indication: OSTEOPOROSIS
     Dosage: 20 UG, EACH MORNING
     Dates: start: 20100129, end: 20100210
  2. EVISTA [Suspect]
     Indication: OSTEOPOROSIS
     Dosage: 60 MG, DAILY (1/D)
     Dates: start: 20000101
  3. DIOVAN [Concomitant]
  4. ASPIRIN [Concomitant]
  5. LEXAPRO [Concomitant]
  6. TENORETIC 100 [Concomitant]
  7. NEXIUM [Concomitant]
  8. RESTORIL [Concomitant]
     Indication: SLEEP DISORDER
  9. ACTONEL [Concomitant]
  10. RANITIDINE [Concomitant]
     Indication: REFLUX OESOPHAGITIS
  11. LORTAB [Concomitant]
     Indication: PAIN
     Dosage: UNK, AS NEEDED
  12. IBUPROFEN [Concomitant]
     Dosage: 800 MG, AS NEEDED
  13. OMEPRAZOLE [Concomitant]
     Indication: NAUSEA
  14. MULTI-VITAMIN [Concomitant]
  15. CALCIUM                                 /N/A/ [Concomitant]
  16. VITAMIN C [Concomitant]
  17. BENZONATATE [Concomitant]
     Indication: COUGH

REACTIONS (7)
  - ABDOMINAL PAIN UPPER [None]
  - ANGINA PECTORIS [None]
  - MALAISE [None]
  - NAUSEA [None]
  - PANCREATITIS [None]
  - SPINAL FRACTURE [None]
  - VOMITING [None]
